FAERS Safety Report 9762737 (Version 2)
Quarter: 2013Q4

REPORT INFORMATION
  Report Type: Spontaneous
  Country: DE (occurrence: DE)
  Receive Date: 20131216
  Receipt Date: 20131226
  Transmission Date: 20140711
  Serious: Yes (Other)
  Sender: FDA-Public Use
  Company Number: PHHY2013DE146425

PATIENT
  Sex: Male

DRUGS (3)
  1. ZOMETA [Suspect]
     Indication: METASTASES TO BONE
     Dosage: 4 MG, UNK
     Route: 042
  2. ZOMETA [Suspect]
     Dosage: 4 MG, UNK
     Route: 042
  3. ZOMETA [Suspect]
     Dosage: 4 MG, UNK
     Route: 042

REACTIONS (2)
  - Eye disorder [Recovered/Resolved]
  - Diplopia [Not Recovered/Not Resolved]
